FAERS Safety Report 7684125-3 (Version None)
Quarter: 2011Q3

REPORT INFORMATION
  Report Type: 
  Country: None (occurrence: None)
  Receive Date: 20110815
  Receipt Date: 20110811
  Transmission Date: 20111222
  Serious: Yes (Hospitalization, Other)
  Sender: FDA-Public Use
  Company Number: JP-BAYER-2011-070780

PATIENT
  Age: 12 Year
  Sex: Female

DRUGS (6)
  1. BETASERON [Suspect]
     Indication: MULTIPLE SCLEROSIS
     Dosage: 2.4 MIU, QD
     Route: 058
     Dates: start: 20060201, end: 20060210
  2. BETASERON [Suspect]
     Dosage: 8 MIU, UNK
     Route: 058
     Dates: start: 20061101, end: 20061101
  3. BETASERON [Suspect]
     Dosage: 8 MIU, UNK
     Route: 058
     Dates: start: 20060216, end: 20061101
  4. IMURAN [Suspect]
     Indication: MULTIPLE SCLEROSIS
     Dosage: DAILY DOSE 50 MG
     Route: 048
     Dates: start: 20040626, end: 20060901
  5. AVONEX [Concomitant]
     Dosage: UNK
     Route: 030
  6. BETASERON [Suspect]
     Dosage: 8 MIU, UNK
     Route: 058
     Dates: start: 20070413, end: 20070415

REACTIONS (11)
  - WHITE BLOOD CELL COUNT DECREASED [None]
  - PNEUMONIA MYCOPLASMAL [None]
  - MULTIPLE SCLEROSIS RELAPSE [None]
  - PYREXIA [None]
  - NAUSEA [None]
  - HEADACHE [None]
  - OPTIC NEURITIS [None]
  - INFLUENZA LIKE ILLNESS [None]
  - INTERSTITIAL LUNG DISEASE [None]
  - HYPOPROTEINAEMIA [None]
  - HYPOALBUMINAEMIA [None]
